FAERS Safety Report 16803901 (Version 1)
Quarter: 2019Q3

REPORT INFORMATION
  Report Type: Spontaneous
  Country: SE (occurrence: SE)
  Receive Date: 20190913
  Receipt Date: 20190913
  Transmission Date: 20191005
  Serious: Yes (Hospitalization)
  Sender: FDA-Public Use
  Company Number: SE-TEVA-2019-SE-1106090

PATIENT
  Sex: Female

DRUGS (3)
  1. OXASCAND [Suspect]
     Active Substance: OXAZEPAM
     Dosage: 10 OXASCAND
     Route: 048
     Dates: start: 20190213, end: 20190213
  2. PROPAVAN [Suspect]
     Active Substance: PROPIOMAZINE
     Dosage: 10 ST
     Route: 048
     Dates: start: 20190213, end: 20190213
  3. LERGIGAN (PROMETHAZINE) [Suspect]
     Active Substance: PROMETHAZINE HYDROCHLORIDE
     Dosage: 20 LERGIGAN
     Route: 048
     Dates: start: 20190213, end: 20190213

REACTIONS (2)
  - Intentional self-injury [Unknown]
  - Intentional overdose [Unknown]

NARRATIVE: CASE EVENT DATE: 20190213
